FAERS Safety Report 13928669 (Version 1)
Quarter: 2017Q3

REPORT INFORMATION
  Report Type: Spontaneous
  Country: RU (occurrence: RU)
  Receive Date: 20170901
  Receipt Date: 20170901
  Transmission Date: 20171127
  Serious: Yes (Hospitalization)
  Sender: FDA-Public Use
  Company Number: RU-ASTRAZENECA-2017SE87595

PATIENT
  Age: 64 Year
  Sex: Female
  Weight: 90 kg

DRUGS (9)
  1. OMEPRAZOLE. [Concomitant]
     Active Substance: OMEPRAZOLE
  2. CONCOR [Concomitant]
     Active Substance: BISOPROLOL FUMARATE
  3. LOZAP [Concomitant]
     Active Substance: LOSARTAN
  4. AMLODIPINE [Concomitant]
     Active Substance: AMLODIPINE BESYLATE
  5. BRILINTA [Suspect]
     Active Substance: TICAGRELOR
     Indication: MYOCARDIAL INFARCTION
     Route: 048
  6. CARDIKET [Concomitant]
     Active Substance: ISOSORBIDE DINITRATE
  7. TRIMETAZIDINE [Concomitant]
     Active Substance: TRIMETAZIDINE
  8. VEROSPIRON [Concomitant]
     Active Substance: SPIRONOLACTONE
  9. ROSUVASTATIN. [Concomitant]
     Active Substance: ROSUVASTATIN

REACTIONS (2)
  - Angina pectoris [Recovered/Resolved]
  - Coronary artery thrombosis [Unknown]

NARRATIVE: CASE EVENT DATE: 20170803
